FAERS Safety Report 11981380 (Version 2)
Quarter: 2016Q2

REPORT INFORMATION
  Report Type: Spontaneous
  Country: BE (occurrence: BE)
  Receive Date: 20160130
  Receipt Date: 20160415
  Transmission Date: 20160815
  Serious: Yes (Other)
  Sender: FDA-Public Use
  Company Number: BE-ABBVIE-16K-013-1545991-00

PATIENT
  Age: 49 Year
  Sex: Male
  Weight: 96 kg

DRUGS (1)
  1. HUMIRA [Suspect]
     Active Substance: ADALIMUMAB
     Indication: PSORIATIC ARTHROPATHY
     Route: 058
     Dates: start: 2006, end: 2015

REACTIONS (4)
  - Rectal tenesmus [Unknown]
  - Rectal cancer stage IV [Unknown]
  - Hepatic lesion [Unknown]
  - Gastrointestinal carcinoma [Unknown]

NARRATIVE: CASE EVENT DATE: 20151224
